FAERS Safety Report 14421382 (Version 2)
Quarter: 2018Q1

REPORT INFORMATION
  Report Type: Spontaneous
  Country: TW (occurrence: TW)
  Receive Date: 20180122
  Receipt Date: 20180316
  Transmission Date: 20180509
  Serious: Yes (Other)
  Sender: FDA-Public Use
  Company Number: TW-BAUSCH-BL-2018-001869

PATIENT
  Age: 40 Year
  Sex: Male
  Weight: 78.09 kg

DRUGS (2)
  1. VISUDYNE [Suspect]
     Active Substance: VERTEPORFIN
     Indication: CHORIORETINOPATHY
     Route: 042
     Dates: start: 20171207, end: 20171207
  2. VISUDYNE [Suspect]
     Active Substance: VERTEPORFIN
     Route: 042

REACTIONS (3)
  - Retinal neovascularisation [Recovering/Resolving]
  - Choroidal neovascularisation [Recovered/Resolved with Sequelae]
  - Product use in unapproved indication [Unknown]

NARRATIVE: CASE EVENT DATE: 20180102
